FAERS Safety Report 4935301-1 (Version None)
Quarter: 2006Q1

REPORT INFORMATION
  Report Type: 
  Country: None (occurrence: None)
  Receive Date: 20060307
  Receipt Date: 20060307
  Transmission Date: 20060701
  Serious: Yes (Other)
  Sender: FDA-Public Use
  Company Number: 200611149EU

PATIENT
  Age: 31 Year
  Sex: Female

DRUGS (7)
  1. NICODERM [Suspect]
     Dosage: 21MG PER DAY
     Route: 062
     Dates: start: 20060101
  2. MUSCLE RELAXANT [Concomitant]
  3. QUETIAPINE FUMARATE [Concomitant]
     Indication: PANIC ATTACK
  4. HYDROCHLOROTHIAZIDE [Concomitant]
     Indication: HYPERTENSION
  5. VENLAFAXINE HCL [Concomitant]
     Indication: ANXIETY
  6. CLONAZEPAM [Concomitant]
     Indication: PANIC REACTION
  7. ACETAMINOPHEN W/ CODEINE [Concomitant]
     Indication: TOOTH INFECTION

REACTIONS (14)
  - ABNORMAL DREAMS [None]
  - ANXIETY [None]
  - APPLICATION SITE ERYTHEMA [None]
  - ASTHENIA [None]
  - CONFUSIONAL STATE [None]
  - DEHYDRATION [None]
  - DIARRHOEA [None]
  - DRUG INEFFECTIVE [None]
  - HEADACHE [None]
  - HYPOACUSIS [None]
  - INSOMNIA [None]
  - OVERDOSE [None]
  - PANIC ATTACK [None]
  - VOMITING [None]
